FAERS Safety Report 5731043-3 (Version None)
Quarter: 2008Q2

REPORT INFORMATION
  Report Type: 
  Country: None (occurrence: None)
  Receive Date: 20080505
  Receipt Date: 20080422
  Transmission Date: 20081010
  Serious: No
  Sender: FDA-Public Use
  Company Number: 002#2#2008-00275

PATIENT
  Age: 66 Year
  Sex: Male
  Weight: 90.7194 kg

DRUGS (11)
  1. NEUPRO [Suspect]
     Dosage: 6MG/24H, 1 IN 1, 6MG/24H, 1 IN 1 D, TRANSDERMAL, 2MG/24H, 1 IN 1 D, TRANSDERMAL, 6MG/24H, 1 IN 1 D
     Route: 062
     Dates: start: 20080101, end: 20080101
  2. NEUPRO [Suspect]
     Dosage: 6MG/24H, 1 IN 1, 6MG/24H, 1 IN 1 D, TRANSDERMAL, 2MG/24H, 1 IN 1 D, TRANSDERMAL, 6MG/24H, 1 IN 1 D
     Route: 062
     Dates: start: 20080101, end: 20080301
  3. NEUPRO [Suspect]
     Dosage: 6MG/24H, 1 IN 1, 6MG/24H, 1 IN 1 D, TRANSDERMAL, 2MG/24H, 1 IN 1 D, TRANSDERMAL, 6MG/24H, 1 IN 1 D
     Route: 062
     Dates: start: 20080401
  4. REQUIP [Concomitant]
  5. CARBIDOPA AND LEVODOPA [Concomitant]
  6. DOXEPAM [Concomitant]
  7. KLONOPIN [Concomitant]
  8. LISINOPRIL [Concomitant]
  9. LIPITOR [Concomitant]
  10. UROXATRAL [Concomitant]
  11. OXYTROL [Concomitant]

REACTIONS (6)
  - ADVERSE REACTION [None]
  - CONDITION AGGRAVATED [None]
  - GAIT DISTURBANCE [None]
  - IMPAIRED DRIVING ABILITY [None]
  - MUSCLE RIGIDITY [None]
  - WALKING AID USER [None]
